FAERS Safety Report 6457463-X (Version None)
Quarter: 2009Q4

REPORT INFORMATION
  Report Type: 
  Country: None (occurrence: None)
  Receive Date: 20091120
  Receipt Date: 20091105
  Transmission Date: 20100525
  Serious: Yes (Other)
  Sender: FDA-Public Use
  Company Number: DSA_41985_2009

PATIENT
  Sex: Female

DRUGS (1)
  1. VOXRA-BUPROPION XL [Suspect]
     Indication: DRUG USE FOR UNKNOWN INDICATION
     Dosage: 450 MG TOTAL DAILY DOSE, DF

REACTIONS (3)
  - DEHYDRATION [None]
  - EPILEPSY [None]
  - GRAND MAL CONVULSION [None]
